FAERS Safety Report 18026582 (Version 3)
Quarter: 2021Q2

REPORT INFORMATION
  Report Type: Report from Study
  Country: US (occurrence: US)
  Receive Date: 20200715
  Receipt Date: 20210618
  Transmission Date: 20210717
  Serious: Yes (Hospitalization, Other)
  Sender: FDA-Public Use
  Company Number: US-SHIRE-US201931447

PATIENT
  Age: 66 Year
  Sex: Female
  Weight: 60 kg

DRUGS (16)
  1. TEDUGLUTIDE [Suspect]
     Active Substance: TEDUGLUTIDE
     Indication: SHORT-BOWEL SYNDROME
     Dosage: 2.93 MILLIGRAM (0.05 MILLIGRAM/KILOGRAM DAILU DOSE), 7 DOSES PER WEEK
     Route: 065
     Dates: start: 20180826, end: 20190530
  2. TEDUGLUTIDE [Suspect]
     Active Substance: TEDUGLUTIDE
     Indication: SHORT-BOWEL SYNDROME
     Dosage: 2.93 MILLIGRAM (0.05 MILLIGRAM/KILOGRAM DAILU DOSE), 7 DOSES PER WEEK
     Route: 065
     Dates: start: 20180826, end: 20190530
  3. TEDUGLUTIDE [Suspect]
     Active Substance: TEDUGLUTIDE
     Dosage: 2.93 MILLIGRAM (0.05 MILLIGRAM/KILOGRAM DAILU DOSE), 7 DOSES PER WEEK
     Route: 065
     Dates: start: 20190605, end: 20201006
  4. MOXIFLOXACIN. [Concomitant]
     Active Substance: MOXIFLOXACIN
     Indication: BACTERAEMIA
     Dosage: 400 MILLIGRAM, QD
     Route: 042
     Dates: start: 20200217, end: 20200328
  5. MOXIFLOXACIN. [Concomitant]
     Active Substance: MOXIFLOXACIN
     Dosage: 400 MILLIGRAM, QD
     Route: 048
     Dates: start: 20200213, end: 20200213
  6. TEDUGLUTIDE [Suspect]
     Active Substance: TEDUGLUTIDE
     Dosage: 2.93 MILLIGRAM (0.05 MILLIGRAM/KILOGRAM DAILU DOSE), 7 DOSES PER WEEK
     Route: 065
     Dates: start: 20190605, end: 20201006
  7. AZITHROMYCIN ANHYDROUS. [Concomitant]
     Active Substance: AZITHROMYCIN ANHYDROUS
     Indication: BACTERAEMIA
     Dosage: 500 MILLIGRAM, QD
     Route: 048
     Dates: start: 20200217, end: 20200328
  8. MOXIFLOXACIN. [Concomitant]
     Active Substance: MOXIFLOXACIN
     Dosage: 400 MILLIGRAM, QD
     Route: 042
     Dates: start: 20200214, end: 20200215
  9. TEDUGLUTIDE [Suspect]
     Active Substance: TEDUGLUTIDE
     Indication: SHORT-BOWEL SYNDROME
     Dosage: 2.93 MILLIGRAM (0.05 MILLIGRAM/KILOGRAM DAILU DOSE), 7 DOSES PER WEEK
     Route: 065
     Dates: start: 20180826, end: 20190530
  10. TEDUGLUTIDE [Suspect]
     Active Substance: TEDUGLUTIDE
     Indication: SHORT-BOWEL SYNDROME
     Dosage: 2.93 MILLIGRAM (0.05 MILLIGRAM/KILOGRAM DAILU DOSE), 7 DOSES PER WEEK
     Route: 065
     Dates: start: 20180826, end: 20190530
  11. TEDUGLUTIDE [Suspect]
     Active Substance: TEDUGLUTIDE
     Dosage: 2.93 MILLIGRAM (0.05 MILLIGRAM/KILOGRAM DAILU DOSE), 7 DOSES PER WEEK
     Route: 065
     Dates: start: 20190605, end: 20201006
  12. TEDUGLUTIDE [Suspect]
     Active Substance: TEDUGLUTIDE
     Dosage: 2.775 MILLIGRAM
     Route: 065
     Dates: start: 20201007
  13. TEDUGLUTIDE [Suspect]
     Active Substance: TEDUGLUTIDE
     Dosage: 2.93 MILLIGRAM (0.05 MILLIGRAM/KILOGRAM DAILU DOSE), 7 DOSES PER WEEK
     Route: 065
     Dates: start: 20190605, end: 20201006
  14. TEDUGLUTIDE [Suspect]
     Active Substance: TEDUGLUTIDE
     Dosage: 2.775 MILLIGRAM
     Route: 065
     Dates: start: 20201007
  15. TEDUGLUTIDE [Suspect]
     Active Substance: TEDUGLUTIDE
     Dosage: 2.775 MILLIGRAM
     Route: 065
     Dates: start: 20201007
  16. TEDUGLUTIDE [Suspect]
     Active Substance: TEDUGLUTIDE
     Dosage: 2.775 MILLIGRAM
     Route: 065
     Dates: start: 20201007

REACTIONS (5)
  - Rectal polyp [Recovered/Resolved]
  - Intraductal papillary mucinous neoplasm [Not Recovered/Not Resolved]
  - Gastrointestinal wall thickening [Unknown]
  - Bacteraemia [Recovered/Resolved]
  - Duodenal polyp [Recovered/Resolved]

NARRATIVE: CASE EVENT DATE: 20190830
